FAERS Safety Report 14329330 (Version 3)
Quarter: 2018Q3

REPORT INFORMATION
  Report Type: Spontaneous
  Country: DE (occurrence: DE)
  Receive Date: 20171227
  Receipt Date: 20180920
  Transmission Date: 20181010
  Serious: Yes (Death, Other)
  Sender: FDA-Public Use
  Company Number: DE-SA-2017SA258834

PATIENT
  Age: 74 Year
  Sex: Male

DRUGS (14)
  1. LANTUS [Suspect]
     Active Substance: INSULIN GLARGINE
     Indication: PRODUCT USED FOR UNKNOWN INDICATION
     Dosage: UNK UNK,UNK
     Route: 065
  2. APIDRA [Interacting]
     Active Substance: INSULIN GLULISINE
     Indication: PRODUCT USED FOR UNKNOWN INDICATION
     Dosage: UNK UNK,UNK
     Route: 065
  3. TAMSULOSIN HYDROCHLORIDE. [Interacting]
     Active Substance: TAMSULOSIN HYDROCHLORIDE
     Dosage: UNK UNK,UNK
     Route: 048
  4. METFORMIN HYDROCHLORIDE. [Interacting]
     Active Substance: METFORMIN HYDROCHLORIDE
     Indication: PRODUCT USED FOR UNKNOWN INDICATION
     Dosage: 500 MG,UNK
     Route: 048
  5. QUETIAPINE FUMARATE. [Interacting]
     Active Substance: QUETIAPINE FUMARATE
     Dosage: UNK UNK,UNK
     Route: 048
  6. LEVOMEPROMAZINE [Interacting]
     Active Substance: LEVOMEPROMAZINE
     Indication: PRODUCT USED FOR UNKNOWN INDICATION
     Dosage: UNK UNK,UNK
     Route: 048
  7. DONEPEZIL HYDROCHLORIDE. [Interacting]
     Active Substance: DONEPEZIL HYDROCHLORIDE
     Dosage: UNK UNK,UNK
     Route: 048
  8. ALLOPURINOL. [Interacting]
     Active Substance: ALLOPURINOL
     Dosage: UNK UNK,UNK
     Route: 048
  9. TORASEMIDE [Interacting]
     Active Substance: TORSEMIDE
     Dosage: UNK UNK,UNK
     Route: 048
  10. BISOPROLOL FUMARATE. [Interacting]
     Active Substance: BISOPROLOL FUMARATE
     Dosage: UNK UNK,UNK
     Route: 048
  11. SIMVASTATIN. [Interacting]
     Active Substance: SIMVASTATIN
     Dosage: UNK UNK,UNK
     Route: 048
  12. CANDECOR COMP [Interacting]
     Active Substance: CANDESARTAN CILEXETIL\HYDROCHLOROTHIAZIDE
     Indication: PRODUCT USED FOR UNKNOWN INDICATION
     Dosage: UNK UNK,UNK
     Route: 048
  13. FALITHROM [Interacting]
     Active Substance: PHENPROCOUMON
     Indication: PRODUCT USED FOR UNKNOWN INDICATION
     Dosage: UNK UNK,UNK
     Route: 048
  14. RISPERIDONE. [Interacting]
     Active Substance: RISPERIDONE
     Dosage: UNK UNK,UNK
     Route: 048

REACTIONS (16)
  - Drug interaction [Unknown]
  - Cognitive disorder [Unknown]
  - Balance disorder [Unknown]
  - Blood glucose abnormal [Unknown]
  - Dizziness [Unknown]
  - Adverse drug reaction [Unknown]
  - Urinary incontinence [Unknown]
  - Intestinal haemorrhage [Unknown]
  - Contusion [Unknown]
  - Confusional state [Unknown]
  - Gastrointestinal haemorrhage [Unknown]
  - Blood glucose fluctuation [Unknown]
  - Contraindicated product administered [Unknown]
  - Renal failure [Unknown]
  - Hyperhidrosis [Unknown]
  - Haematoma [Unknown]
